FAERS Safety Report 5211861-0 (Version None)
Quarter: 2007Q1

REPORT INFORMATION
  Report Type: 
  Country: None (occurrence: None)
  Receive Date: 20070116
  Receipt Date: 20070116
  Transmission Date: 20070707
  Serious: Yes (Death)
  Sender: FDA-Public Use
  Company Number: None

PATIENT
  Age: 42 Year
  Sex: Male
  Weight: 48.64 kg

DRUGS (3)
  1. TAXOL [Suspect]
     Indication: TONSIL CANCER
     Dosage: 64MG  QWK  IV
     Route: 042
     Dates: start: 20061220, end: 20070102
  2. CETUXIMAB 250MG/M2 [Suspect]
     Indication: TONSIL CANCER
     Dosage: 400MG  QWK  IV
     Route: 042
     Dates: start: 20061121, end: 20070102
  3. CARBOPLATIN [Suspect]
     Indication: TONSIL CANCER
     Dosage: 122 MG IV  WEEKLY  IV
     Route: 042
     Dates: start: 20061220, end: 20070102

REACTIONS (1)
  - MUCOSAL INFLAMMATION [None]
